FAERS Safety Report 11811969 (Version 5)
Quarter: 2017Q1

REPORT INFORMATION
  Report Type: Report from Study
  Country: CO (occurrence: CO)
  Receive Date: 20151208
  Receipt Date: 20170330
  Transmission Date: 20170428
  Serious: Yes (Life-Threatening, Hospitalization, Other)
  Sender: FDA-Public Use
  Company Number: PHHY2015CO160048

PATIENT
  Age: 29 Year
  Sex: Male
  Weight: 50 kg

DRUGS (3)
  1. BOSUTINIB [Concomitant]
     Active Substance: BOSUTINIB
     Indication: PRODUCT USED FOR UNKNOWN INDICATION
     Route: 065
  2. HYDROXYUREA. [Concomitant]
     Active Substance: HYDROXYUREA
     Indication: PRODUCT USED FOR UNKNOWN INDICATION
     Route: 065
  3. TASIGNA [Suspect]
     Active Substance: NILOTINIB
     Indication: CHRONIC MYELOID LEUKAEMIA
     Dosage: 200 MG, QD
     Route: 048
     Dates: start: 20150226, end: 20151127

REACTIONS (23)
  - White blood cell count decreased [Unknown]
  - Fatigue [Unknown]
  - Night sweats [Unknown]
  - Haemoglobin decreased [Unknown]
  - Bone pain [Unknown]
  - Pain [Not Recovered/Not Resolved]
  - Hepatic enzyme abnormal [Unknown]
  - Platelet count increased [Unknown]
  - Myalgia [Unknown]
  - Spinal disorder [Unknown]
  - Headache [Unknown]
  - Weight decreased [Unknown]
  - Obstruction gastric [Unknown]
  - Pyrexia [Unknown]
  - Hepatitis [Unknown]
  - Splenomegaly [Unknown]
  - Abdominal pain upper [Unknown]
  - Diarrhoea [Recovered/Resolved]
  - Dizziness [Unknown]
  - Pigmentation disorder [Unknown]
  - Vomiting [Recovered/Resolved]
  - Arthralgia [Unknown]
  - Jaundice [Unknown]

NARRATIVE: CASE EVENT DATE: 20170121
